FAERS Safety Report 6272527-1 (Version None)
Quarter: 2009Q3

REPORT INFORMATION
  Report Type: 
  Country: None (occurrence: None)
  Receive Date: 20090717
  Receipt Date: 20090708
  Transmission Date: 20100115
  Serious: Yes (Other)
  Sender: FDA-Public Use
  Company Number: PHHY2009JP24054

PATIENT

DRUGS (17)
  1. DIOVAN [Suspect]
     Indication: HYPERTENSION
     Dosage: 80 MG, TWICE DAILY
     Route: 048
     Dates: start: 20090601
  2. AMLODIPINE [Concomitant]
     Dosage: 5 MG
     Route: 048
  3. CARVEDILOL [Concomitant]
     Dosage: 10 MG
  4. LASIX [Concomitant]
     Dosage: 20 MG
     Route: 048
  5. ASPIRIN [Concomitant]
     Dosage: 100 MG
     Route: 048
  6. FRENADOL [Concomitant]
     Dosage: UNK
     Route: 062
  7. GLUCOBAY [Concomitant]
     Dosage: 150 MG
     Route: 048
  8. LIPITOR [Concomitant]
     Dosage: 5 MG
     Route: 048
  9. PARIET [Concomitant]
     Dosage: 10 MG
     Route: 048
  10. ACTOS [Concomitant]
     Dosage: 15 MG
     Route: 048
  11. AMARYL [Concomitant]
     Dosage: 1 MG
     Route: 048
  12. MAGLAX [Concomitant]
     Dosage: 990 MG
     Route: 048
  13. ACTONEL [Concomitant]
     Dosage: 17.5 MG
     Route: 048
  14. ALFACALCIDOL [Concomitant]
     Dosage: 0.5 UG
     Route: 048
  15. VOLTAREN [Concomitant]
     Dosage: 25 MG
     Route: 054
  16. HOCHUUEKKITOU [Concomitant]
     Dosage: 22.5 G
     Route: 048
  17. ENSURE [Concomitant]
     Dosage: UNK

REACTIONS (2)
  - GASTRECTOMY [None]
  - NAUSEA [None]
